FAERS Safety Report 7134447-X (Version None)
Quarter: 2010Q4

REPORT INFORMATION
  Report Type: 
  Country: None (occurrence: None)
  Receive Date: 20101203
  Receipt Date: 20101130
  Transmission Date: 20110411
  Serious: No
  Sender: FDA-Public Use
  Company Number: PHHY2010JP80590

PATIENT
  Age: 85 Year
  Sex: Male

DRUGS (3)
  1. NEORAL [Suspect]
     Indication: NEPHROTIC SYNDROME
     Dosage: UNK
     Dates: start: 20101123
  2. ZYLORIC [Concomitant]
     Indication: NEPHROTIC SYNDROME
  3. MEVALOTIN [Concomitant]
     Indication: NEPHROTIC SYNDROME

REACTIONS (1)
  - NIGHTMARE [None]
